FAERS Safety Report 5085406-2 (Version None)
Quarter: 2006Q3

REPORT INFORMATION
  Report Type: 
  Country: None (occurrence: None)
  Receive Date: 20060816
  Receipt Date: 20060804
  Transmission Date: 20061208
  Serious: Yes (Hospitalization)
  Sender: FDA-Public Use
  Company Number: 2006-08-0227

PATIENT
  Age: 68 Year
  Sex: Male
  Weight: 102 kg

DRUGS (10)
  1. EPTIFIBATIDE INJECTABLE SOLUTION [Suspect]
     Indication: ACUTE CORONARY SYNDROME
     Dosage: INTRAVENOUS
     Route: 042
     Dates: start: 20060712, end: 20060714
  2. ASPIRIN [Concomitant]
  3. CLOPIDOGREL [Concomitant]
  4. METOPROLOL TARTRATE [Concomitant]
  5. RAMIPRIL [Concomitant]
  6. ATORVASTATIN CALCIUM [Concomitant]
  7. TORSEMIDE [Concomitant]
  8. HYDROCHLOROTHIAZIDE [Concomitant]
  9. CANDESARTAN CILEXETIL [Concomitant]
  10. ESOMEPRAZOLE MAGNESIUM [Concomitant]

REACTIONS (1)
  - RENAL FAILURE ACUTE [None]
